FAERS Safety Report 7834680-5 (Version None)
Quarter: 2011Q4

REPORT INFORMATION
  Report Type: 
  Country: None (occurrence: None)
  Receive Date: 20111024
  Receipt Date: 20111017
  Transmission Date: 20120403
  Serious: Yes (Hospitalization)
  Sender: FDA-Public Use
  Company Number: US-ABBOTT-11P-163-0866382-00

PATIENT
  Sex: Female
  Weight: 51.756 kg

DRUGS (1)
  1. HUMIRA [Suspect]
     Indication: CROHN'S DISEASE
     Dates: start: 20110908

REACTIONS (6)
  - VOMITING [None]
  - DECREASED APPETITE [None]
  - GAIT DISTURBANCE [None]
  - DIARRHOEA [None]
  - NAUSEA [None]
  - ARTHRALGIA [None]
